FAERS Safety Report 5656840-4 (Version None)
Quarter: 2008Q1

REPORT INFORMATION
  Report Type: 
  Country: None (occurrence: None)
  Receive Date: 20080310
  Receipt Date: 20080226
  Transmission Date: 20080703
  Serious: Yes (Other)
  Sender: FDA-Public Use
  Company Number: US-AMGEN-QUU267013

PATIENT
  Sex: Male

DRUGS (1)
  1. ENBREL [Suspect]
     Indication: PSORIASIS
     Route: 058
     Dates: start: 20070901, end: 20080211

REACTIONS (4)
  - DISEASE RECURRENCE [None]
  - HYPOAESTHESIA [None]
  - PSORIASIS [None]
  - SENSORY LOSS [None]
